FAERS Safety Report 12328258 (Version 1)
Quarter: 2016Q2

REPORT INFORMATION
  Report Type: Spontaneous
  Country: US (occurrence: US)
  Receive Date: 20160503
  Receipt Date: 20160503
  Transmission Date: 20160815
  Serious: Yes (Death)
  Sender: FDA-Public Use
  Company Number: US-PROCTER_AND_GAMBLE-GS16053528

PATIENT
  Age: 32 Year
  Sex: Male

DRUGS (3)
  1. ZZZQUIL NIGHTTIME SLEEP-AID [Suspect]
     Active Substance: DIPHENHYDRAMINE HYDROCHLORIDE
     Indication: INSOMNIA
     Dosage: 1 CAPSULE, TOOK 2 OR 4 BEFORE GOING TO BED, GOT UP AND TOOK 2 OR 4 MORE
     Route: 048
  2. XANAX [Suspect]
     Active Substance: ALPRAZOLAM
     Indication: ANXIETY
     Route: 048
  3. ZZZQUIL NIGHTTIME SLEEP-AID [Suspect]
     Active Substance: DIPHENHYDRAMINE HYDROCHLORIDE
     Dosage: 2 TSP AT NIGHT

REACTIONS (5)
  - Product use issue [Unknown]
  - Pneumonia [None]
  - Confusional state [Unknown]
  - Death [Fatal]
  - Overdose [Unknown]
